FAERS Safety Report 8816280 (Version 1)
Quarter: 2012Q4

REPORT INFORMATION
  Report Type: Spontaneous
  Country: US (occurrence: None)
  Receive Date: 20120927
  Receipt Date: 20120927
  Transmission Date: 20130627
  Serious: Yes (Life-Threatening, Other)
  Sender: FDA-Public Use
  Company Number: None

PATIENT
  Age: 26 Year
  Sex: Female
  Weight: 92.99 kg

DRUGS (2)
  1. ORTHO TRI CYCLEN [Suspect]
     Indication: BIRTH CONTROL
     Dates: start: 20000501, end: 20020801
  2. ORTHO TRI CYCLEN [Suspect]
     Dates: start: 20020801, end: 20040901

REACTIONS (2)
  - Dyspnoea [None]
  - Benign hepatic neoplasm [None]
